FAERS Safety Report 7823265-2 (Version None)
Quarter: 2011Q4

REPORT INFORMATION
  Report Type: 
  Country: None (occurrence: None)
  Receive Date: 20111013
  Receipt Date: 20111004
  Transmission Date: 20120403
  Serious: Yes (Death, Life-Threatening)
  Sender: FDA-Public Use
  Company Number: CLOF-10728

PATIENT
  Sex: Female

DRUGS (3)
  1. DAUNORUBICIN HCL [Suspect]
     Indication: ACUTE LEUKAEMIA
     Dosage: UNK, QD, UNKNOWN
     Dates: start: 20070928, end: 20071002
  2. EVOLTRA (CLOFARABINE) SOLUTION FOR INFUSION [Suspect]
     Indication: ACUTE LEUKAEMIA
     Dosage: UNK, QD, INTRAVENOUS
     Route: 042
     Dates: start: 20070928, end: 20071002
  3. MYLOTARG [Suspect]
     Indication: ACUTE LEUKAEMIA
     Dosage: UNK, QD, INTRAVENOUS
     Route: 042
     Dates: start: 20070928, end: 20071002

REACTIONS (6)
  - HYPOKALAEMIA [None]
  - ACIDOSIS [None]
  - HYPERNATRAEMIA [None]
  - POLYURIA [None]
  - HEPATORENAL FAILURE [None]
  - BLOOD CREATININE INCREASED [None]
